FAERS Safety Report 20505050 (Version 1)
Quarter: 2022Q1

REPORT INFORMATION
  Report Type: Other
  Country: US (occurrence: None)
  Receive Date: 20220223
  Receipt Date: 20220223
  Transmission Date: 20220423
  Serious: Yes (Other)
  Sender: FDA-Public Use
  Company Number: US-ROCHE-2907817

PATIENT
  Sex: Female
  Weight: 57.204 kg

DRUGS (10)
  1. OCREVUS [Suspect]
     Active Substance: OCRELIZUMAB
     Indication: Relapsing-remitting multiple sclerosis
     Dosage: 1/2 DOSE REPEATED ONCE IN 15 DAYS ;ONGOING: NO?DATE OF TREATMENT: 11/JAN/2021, 25/JAN/2021, 12/JUL/
     Route: 042
     Dates: start: 20210111, end: 202101
  2. OCREVUS [Suspect]
     Active Substance: OCRELIZUMAB
     Dosage: FULL DOSE ;ONGOING: YES
     Route: 042
     Dates: start: 202107
  3. DIAZEPAM [Suspect]
     Active Substance: DIAZEPAM
     Indication: Insomnia
     Route: 048
  4. MYRBETRIQ [Suspect]
     Active Substance: MIRABEGRON
     Indication: Product used for unknown indication
     Route: 048
  5. BENADRYL [Concomitant]
     Active Substance: DIPHENHYDRAMINE HYDROCHLORIDE
  6. SOLU-MEDROL [Concomitant]
     Active Substance: METHYLPREDNISOLONE SODIUM SUCCINATE
  7. PANTOPRAZOLE [Concomitant]
     Active Substance: PANTOPRAZOLE
  8. FLUCONAZOLE [Concomitant]
     Active Substance: FLUCONAZOLE
  9. COLLAGEN [Concomitant]
     Active Substance: COLLAGEN
  10. CRANBERRY [Concomitant]
     Active Substance: CRANBERRY

REACTIONS (3)
  - Urinary tract infection [Not Recovered/Not Resolved]
  - Multiple sclerosis relapse [Unknown]
  - Fungal infection [Recovered/Resolved]
